FAERS Safety Report 13835039 (Version 2)
Quarter: 2018Q2

REPORT INFORMATION
  Report Type: Spontaneous
  Country: US (occurrence: US)
  Receive Date: 20170804
  Receipt Date: 20180517
  Transmission Date: 20180711
  Serious: Yes (Hospitalization, Other)
  Sender: FDA-Public Use
  Company Number: US-PFIZER INC-2017334950

PATIENT
  Age: 52 Year
  Sex: Female

DRUGS (2)
  1. FUROSEMIDE. [Suspect]
     Active Substance: FUROSEMIDE
     Dosage: 20 MG, AS NEEDED
     Route: 048
  2. ADVIL [Suspect]
     Active Substance: IBUPROFEN
     Indication: PAIN
     Dosage: 600 MG, AS NEEDED [TAKE 1 TABLET PO 4 (FOUR) TIMES DAILY]
     Route: 048

REACTIONS (23)
  - Condition aggravated [Unknown]
  - Limb injury [Unknown]
  - Myalgia [Unknown]
  - Fatigue [Unknown]
  - Peripheral swelling [Unknown]
  - Pain [Unknown]
  - Pain in extremity [Unknown]
  - Arthritis [Unknown]
  - Dyspnoea [Unknown]
  - Back pain [Unknown]
  - Increased tendency to bruise [Unknown]
  - Haemorrhagic diathesis [Unknown]
  - Nervousness [Unknown]
  - Gait inability [Unknown]
  - Overdose [Unknown]
  - Malaise [Unknown]
  - Headache [Unknown]
  - Depression [Unknown]
  - Joint range of motion decreased [Unknown]
  - Arthralgia [Unknown]
  - Musculoskeletal stiffness [Unknown]
  - Foot deformity [Unknown]
  - Anxiety [Unknown]
